FAERS Safety Report 8296635-9 (Version None)
Quarter: 2012Q2

REPORT INFORMATION
  Report Type: 
  Country: None (occurrence: None)
  Receive Date: 20120418
  Receipt Date: 20120418
  Transmission Date: 20120825
  Serious: Yes (Life-Threatening, Hospitalization)
  Sender: FDA-Public Use
  Company Number: None

PATIENT
  Age: 41 Year
  Sex: Female
  Weight: 54.884 kg

DRUGS (5)
  1. CYMBALTA [Concomitant]
     Indication: DEPRESSION
  2. ORTHO TRI-CYCLEN [Concomitant]
     Route: 048
  3. TRASADONE [Concomitant]
     Route: 048
  4. CAMPRAL [Suspect]
     Indication: ALCOHOL ABUSE
  5. ATENOLOL [Concomitant]
     Route: 048

REACTIONS (7)
  - NAUSEA [None]
  - VOMITING [None]
  - GRAND MAL CONVULSION [None]
  - HEPATIC FUNCTION ABNORMAL [None]
  - WEIGHT DECREASED [None]
  - LOSS OF CONSCIOUSNESS [None]
  - CONFUSIONAL STATE [None]
